FAERS Safety Report 14709080 (Version 1)
Quarter: 2018Q2

REPORT INFORMATION
  Report Type: Spontaneous
  Country: US (occurrence: US)
  Receive Date: 20180403
  Receipt Date: 20180403
  Transmission Date: 20180711
  Serious: Yes (Life-Threatening, Disabling)
  Sender: FDA-Public Use
  Company Number: US-FRESENIUS KABI-FK201803922

PATIENT

DRUGS (1)
  1. MORPHINE (MANUFACTURER UNKNOWN) [Suspect]
     Active Substance: MORPHINE
     Indication: ANALGESIC THERAPY
     Route: 065

REACTIONS (4)
  - Unresponsive to stimuli [Unknown]
  - Cardiac arrest [Unknown]
  - Incorrect dose administered [Unknown]
  - Brain injury [Unknown]
